FAERS Safety Report 15153961 (Version 1)
Quarter: 2018Q3

REPORT INFORMATION
  Report Type: Report from Study
  Country: US (occurrence: US)
  Receive Date: 20180717
  Receipt Date: 20180717
  Transmission Date: 20181010
  Serious: Yes (Other)
  Sender: FDA-Public Use
  Company Number: PHEH2018US029217

PATIENT
  Age: 21 Year
  Sex: Male

DRUGS (2)
  1. TEGRETOL XR [Suspect]
     Active Substance: CARBAMAZEPINE
     Indication: PRODUCT USED FOR UNKNOWN INDICATION
     Dosage: 200 MG, BID
     Route: 048
     Dates: start: 20170214
  2. TEGRETOL XR [Suspect]
     Active Substance: CARBAMAZEPINE
     Dosage: 850 MG, BID
     Route: 048

REACTIONS (1)
  - Seizure [Recovering/Resolving]

NARRATIVE: CASE EVENT DATE: 20180621
